FAERS Safety Report 13658560 (Version 3)
Quarter: 2017Q3

REPORT INFORMATION
  Report Type: Spontaneous
  Country: US (occurrence: US)
  Receive Date: 20170616
  Receipt Date: 20170929
  Transmission Date: 20171127
  Serious: No
  Sender: FDA-Public Use
  Company Number: US-PFIZER INC-2017264318

PATIENT
  Age: 44 Year
  Sex: Female

DRUGS (4)
  1. TYLENOL [Concomitant]
     Active Substance: ACETAMINOPHEN
     Dosage: UNK
  2. IBUPROFEN. [Suspect]
     Active Substance: IBUPROFEN
     Indication: PYREXIA
  3. REBIF [Concomitant]
     Active Substance: INTERFERON BETA-1A
     Indication: MUSCLE SPASMS
     Dosage: 44 MG, UNK
     Dates: start: 201408
  4. IBUPROFEN. [Suspect]
     Active Substance: IBUPROFEN
     Indication: MUSCLE SPASMS
     Dosage: UNK

REACTIONS (2)
  - Insomnia [Unknown]
  - Intentional product misuse [Unknown]
